FAERS Safety Report 19015484 (Version 1)
Quarter: 2021Q1

REPORT INFORMATION
  Report Type: Spontaneous
  Country: FR (occurrence: FR)
  Receive Date: 20210317
  Receipt Date: 20210317
  Transmission Date: 20210420
  Serious: Yes (Hospitalization)
  Sender: FDA-Public Use
  Company Number: FR-SUN PHARMACEUTICAL INDUSTRIES LTD-2021RR-286012

PATIENT
  Age: 73 Year
  Sex: Male
  Weight: 51 kg

DRUGS (12)
  1. SERESTA 10 MG, COMPRIME [Suspect]
     Active Substance: OXAZEPAM
     Indication: ANXIETY
     Dosage: 10 MILLIGRAM, DAILY
     Route: 048
  2. DIFFU K [Suspect]
     Active Substance: POTASSIUM CHLORIDE
     Indication: HYPOKALAEMIA
     Dosage: 1200 MILLIGRAM, DAILY
     Route: 048
  3. AMOXICILLIN. [Suspect]
     Active Substance: AMOXICILLIN
     Dosage: 3 GRAM, UNK
     Route: 042
     Dates: start: 20210130, end: 20210204
  4. KARDEGIC [Suspect]
     Active Substance: ASPIRIN DL-LYSINE
     Indication: PLATELET AGGREGATION INHIBITION
     Dosage: 75 MILLIGRAM, DAILY
     Route: 048
  5. AMOXICILLIN. [Suspect]
     Active Substance: AMOXICILLIN
     Dosage: 3 GRAM, UNK
     Route: 048
     Dates: start: 20210204, end: 20210206
  6. CEFTRIAXONE. [Suspect]
     Active Substance: CEFTRIAXONE
     Indication: SEPSIS
     Dosage: 1 GRAM, DAILY
     Route: 042
     Dates: start: 20210212, end: 20210215
  7. ACIDE CLAVULANIQUE [Suspect]
     Active Substance: CLAVULANIC ACID
     Indication: SEPSIS
     Dosage: 3 GRAM, DAILY
     Route: 048
     Dates: start: 20210204, end: 20210206
  8. SPIRAMYCINE [Suspect]
     Active Substance: SPIRAMYCIN
     Indication: SEPSIS
     Dosage: 4.5 MEGA?INTERNATIONAL UNIT, DAILY
     Route: 042
     Dates: start: 20210130, end: 20210203
  9. ACIDE CLAVULANIQUE [Suspect]
     Active Substance: CLAVULANIC ACID
     Dosage: 375 MILLIGRAM, UNK
     Route: 048
     Dates: start: 20210204, end: 20210206
  10. AMOXICILLIN. [Suspect]
     Active Substance: AMOXICILLIN
     Indication: SEPSIS
     Dosage: 3 GRAM, UNK
     Route: 048
     Dates: start: 20210204, end: 20210206
  11. ATENOLOL. [Suspect]
     Active Substance: ATENOLOL
     Indication: HYPERTENSION
     Dosage: 50 MILLIGRAM, DAILY
     Route: 048
  12. ACIDE CLAVULANIQUE [Suspect]
     Active Substance: CLAVULANIC ACID
     Dosage: 600 MILLIGRAM, UNK
     Route: 042
     Dates: start: 20210130, end: 20210204

REACTIONS (1)
  - Purpura [Not Recovered/Not Resolved]

NARRATIVE: CASE EVENT DATE: 20210215
